FAERS Safety Report 12301226 (Version 3)
Quarter: 2016Q3

REPORT INFORMATION
  Report Type: Report from Study
  Country: BR (occurrence: BR)
  Receive Date: 20160425
  Receipt Date: 20160805
  Transmission Date: 20161109
  Serious: Yes (Hospitalization, Other)
  Sender: FDA-Public Use
  Company Number: BR-ABBVIE-16K-020-1608457-00

PATIENT
  Age: 32 Year
  Sex: Male
  Weight: 88 kg

DRUGS (5)
  1. HUMIRA [Suspect]
     Active Substance: ADALIMUMAB
     Route: 058
     Dates: end: 201602
  2. HUMIRA [Suspect]
     Active Substance: ADALIMUMAB
     Dosage: WEEK 1, LOADING DOSE
     Route: 058
     Dates: start: 201508, end: 201508
  3. OMEPRAZOLE. [Concomitant]
     Active Substance: OMEPRAZOLE
     Indication: GASTROOESOPHAGEAL REFLUX DISEASE
     Route: 048
     Dates: start: 201408
  4. HUMIRA [Suspect]
     Active Substance: ADALIMUMAB
     Indication: CROHN^S DISEASE
     Dosage: WEEK 0
     Route: 058
     Dates: start: 20150730, end: 20150730
  5. AZATHIOPRINE. [Concomitant]
     Active Substance: AZATHIOPRINE
     Indication: CROHN^S DISEASE
     Dates: start: 201503, end: 201602

REACTIONS (8)
  - Lymphadenopathy [Unknown]
  - General symptom [Recovered/Resolved]
  - Lymph node tuberculosis [Recovering/Resolving]
  - Tuberculosis [Recovered/Resolved]
  - Vasculitis necrotising [Unknown]
  - Abdominal lymphadenopathy [Unknown]
  - Intestinal angioedema [Unknown]
  - Hypophagia [Unknown]

NARRATIVE: CASE EVENT DATE: 201602
